FAERS Safety Report 13275346 (Version 1)
Quarter: 2017Q1

REPORT INFORMATION
  Report Type: Spontaneous
  Country: GB (occurrence: GB)
  Receive Date: 20170228
  Receipt Date: 20170228
  Transmission Date: 20170428
  Serious: Yes (Other)
  Sender: FDA-Public Use
  Company Number: GB-AUROBINDO-AUR-APL-2017-30132

PATIENT
  Age: 63 Year
  Sex: Male

DRUGS (1)
  1. IBUPROFEN 400MG [Suspect]
     Active Substance: IBUPROFEN
     Indication: OSTEOARTHRITIS
     Dosage: 400 MG, 3 TIMES A DAY
     Route: 065

REACTIONS (13)
  - Intestinal obstruction [Unknown]
  - Weight decreased [Unknown]
  - Hypoalbuminaemia [Unknown]
  - Oedema mucosal [Unknown]
  - Decreased appetite [Unknown]
  - Diarrhoea [Unknown]
  - Gastrointestinal disorder [Unknown]
  - Diaphragmatic disorder [Unknown]
  - Abdominal pain [Unknown]
  - Hypertrophy [Unknown]
  - Anaemia [Unknown]
  - Gastric ulcer [Unknown]
  - Hypokalaemia [Unknown]
